FAERS Safety Report 14335392 (Version 3)
Quarter: 2018Q1

REPORT INFORMATION
  Report Type: Spontaneous
  Country: JP (occurrence: JP)
  Receive Date: 20171229
  Receipt Date: 20180321
  Transmission Date: 20180509
  Serious: Yes (Death, Other)
  Sender: FDA-Public Use
  Company Number: JP-BRISTOL-MYERS SQUIBB COMPANY-BMS-2017-106414

PATIENT
  Age: 67 Year
  Sex: Male

DRUGS (1)
  1. NIVOLUMAB [Suspect]
     Active Substance: NIVOLUMAB
     Indication: NON-SMALL CELL LUNG CANCER RECURRENT
     Dosage: 3 MG/KG, Q2WK
     Route: 041
     Dates: start: 20170711, end: 20171017

REACTIONS (3)
  - Metastases to lymph nodes [Fatal]
  - Hydronephrosis [Not Recovered/Not Resolved]
  - Cerebral infarction [Unknown]

NARRATIVE: CASE EVENT DATE: 20171031
